FAERS Safety Report 15317860 (Version 4)
Quarter: 2019Q3

REPORT INFORMATION
  Report Type: Report from Study
  Country: US (occurrence: US)
  Receive Date: 20180824
  Receipt Date: 20190919
  Transmission Date: 20191004
  Serious: Yes (Other)
  Sender: FDA-Public Use
  Company Number: PHHY2016US099452

PATIENT
  Age: 34 Year
  Sex: Female

DRUGS (2)
  1. AUGMENTIN [Concomitant]
     Active Substance: AMOXICILLIN\CLAVULANATE POTASSIUM
     Indication: PROPHYLAXIS
     Dosage: UNK
     Route: 065
     Dates: start: 20170418, end: 20170427
  2. GILENYA [Suspect]
     Active Substance: FINGOLIMOD HYDROCHLORIDE
     Indication: MULTIPLE SCLEROSIS
     Dosage: UNK, QD
     Route: 048

REACTIONS (24)
  - Influenza [Recovered/Resolved]
  - Fatigue [Not Recovered/Not Resolved]
  - Animal bite [Recovered/Resolved]
  - Peripheral nerve paresis [Not Recovered/Not Resolved]
  - Skin laceration [Recovered/Resolved]
  - Seborrhoeic keratosis [Unknown]
  - Low density lipoprotein increased [Unknown]
  - Lentigo [Unknown]
  - Cellulitis [Recovered/Resolved]
  - Lymphocyte count decreased [Unknown]
  - Sciatica [Not Recovered/Not Resolved]
  - Melanocytic naevus [Unknown]
  - Hand fracture [Recovered/Resolved]
  - Musculoskeletal pain [Not Recovered/Not Resolved]
  - Contusion [Recovered/Resolved]
  - Blood cholesterol increased [Unknown]
  - Cervical polyp [Not Recovered/Not Resolved]
  - Uterine leiomyoma [Not Recovered/Not Resolved]
  - Pain in extremity [Recovered/Resolved]
  - Cafe au lait spots [Unknown]
  - Affect lability [Not Recovered/Not Resolved]
  - Menorrhagia [Not Recovered/Not Resolved]
  - Blood bilirubin decreased [Unknown]
  - Cognitive disorder [Not Recovered/Not Resolved]

NARRATIVE: CASE EVENT DATE: 20160321
